FAERS Safety Report 9670815 (Version 5)
Quarter: 2014Q1

REPORT INFORMATION
  Report Type: Spontaneous
  Country: US (occurrence: US)
  Receive Date: 20131106
  Receipt Date: 20140224
  Transmission Date: 20141002
  Serious: Yes (Hospitalization, Other)
  Sender: FDA-Public Use
  Company Number: US-JNJFOC-20131017282

PATIENT
  Age: 60 Year
  Sex: Male
  Weight: 98.16 kg

DRUGS (27)
  1. XARELTO [Suspect]
     Indication: DEEP VEIN THROMBOSIS
     Route: 048
     Dates: start: 20131203
  2. XARELTO [Suspect]
     Indication: DEEP VEIN THROMBOSIS
     Route: 048
     Dates: start: 20130910
  3. XARELTO [Suspect]
     Indication: DEEP VEIN THROMBOSIS
     Route: 048
  4. XARELTO [Suspect]
     Indication: DEEP VEIN THROMBOSIS
     Route: 048
  5. XARELTO [Suspect]
     Indication: DEEP VEIN THROMBOSIS
     Route: 048
     Dates: start: 20130812, end: 20131203
  6. XARELTO [Suspect]
     Indication: PULMONARY EMBOLISM
     Route: 048
     Dates: start: 20130910
  7. XARELTO [Suspect]
     Indication: PULMONARY EMBOLISM
     Route: 048
  8. XARELTO [Suspect]
     Indication: PULMONARY EMBOLISM
     Route: 048
  9. XARELTO [Suspect]
     Indication: PULMONARY EMBOLISM
     Route: 048
     Dates: start: 20130812, end: 20131203
  10. XARELTO [Suspect]
     Indication: PULMONARY EMBOLISM
     Route: 048
     Dates: start: 20131203
  11. AMLODIPINE [Concomitant]
     Route: 048
     Dates: start: 20120802
  12. SIMVASTATIN [Concomitant]
     Route: 048
     Dates: start: 20130303
  13. SIMVASTATIN [Concomitant]
     Route: 048
     Dates: start: 20120324
  14. VITAMIN D3 [Concomitant]
     Route: 048
  15. VITAMIN C [Concomitant]
     Route: 048
  16. VITAMIN B COMPLEX [Concomitant]
     Route: 048
  17. METRONIDAZOLE [Concomitant]
     Indication: ROSACEA
     Route: 061
     Dates: start: 20130401
  18. INDOMETHACIN [Concomitant]
     Route: 048
     Dates: start: 20121226
  19. EPIPEN [Concomitant]
     Dosage: 0.3MG/0.3ML
     Route: 065
     Dates: start: 20130323
  20. PERCOCET [Concomitant]
     Indication: CHEST PAIN
     Dosage: 0.3MG/0.3ML
     Route: 048
     Dates: start: 20130816
  21. COLACE [Concomitant]
     Indication: CONSTIPATION
     Dosage: 0.3MG/0.3ML
     Route: 048
     Dates: start: 20130816
  22. FISH OIL [Concomitant]
     Dosage: 0.3MG/0.3ML
     Route: 065
     Dates: start: 20090422
  23. TRAMADOL [Concomitant]
     Dosage: 1-2 TABLET
     Route: 048
     Dates: start: 20130606
  24. TRAMADOL [Concomitant]
     Route: 048
     Dates: start: 20130813
  25. TRAZODONE HCL [Concomitant]
     Route: 048
     Dates: start: 20121113
  26. ASPIRIN BUFFERED [Concomitant]
     Route: 048
  27. ASPIRIN BUFFERED [Concomitant]
     Route: 048
     Dates: start: 20090422, end: 20090422

REACTIONS (12)
  - Pulmonary embolism [Not Recovered/Not Resolved]
  - Deep vein thrombosis [Recovered/Resolved]
  - Atelectasis [Unknown]
  - Chest pain [Unknown]
  - Arthralgia [Unknown]
  - Bronchiectasis [Unknown]
  - Hepatic steatosis [Unknown]
  - Syncope [Recovering/Resolving]
  - Weight fluctuation [Unknown]
  - Treatment noncompliance [Unknown]
  - Dizziness [Recovering/Resolving]
  - Rash [Unknown]
